FAERS Safety Report 17548470 (Version 5)
Quarter: 2020Q2

REPORT INFORMATION
  Report Type: Spontaneous
  Country: AR (occurrence: AR)
  Receive Date: 20200317
  Receipt Date: 20200622
  Transmission Date: 20200713
  Serious: Yes (Hospitalization)
  Sender: FDA-Public Use
  Company Number: AR-ACTELION-A-CH2020-203261

PATIENT
  Age: 60 Year
  Sex: Female
  Weight: 86 kg

DRUGS (3)
  1. MAGNUS [Concomitant]
     Dosage: 250 UNK, TID
  2. SILDENAFIL. [Concomitant]
     Active Substance: SILDENAFIL
  3. OPSUMIT [Suspect]
     Active Substance: MACITENTAN
     Indication: PULMONARY ARTERIAL HYPERTENSION
     Dosage: 10 MG, QD
     Route: 048
     Dates: start: 20200121

REACTIONS (10)
  - Influenza immunisation [Unknown]
  - Arthralgia [Unknown]
  - Influenza [Unknown]
  - Pain [Unknown]
  - Feeling hot [Unknown]
  - Pyrexia [Unknown]
  - Productive cough [Unknown]
  - Increased viscosity of upper respiratory secretion [Unknown]
  - Arrhythmia [Unknown]
  - Scleroderma [Unknown]

NARRATIVE: CASE EVENT DATE: 2020
